FAERS Safety Report 7825695-1 (Version None)
Quarter: 2011Q4

REPORT INFORMATION
  Report Type: 
  Country: None (occurrence: None)
  Receive Date: 20111017
  Receipt Date: 20110920
  Transmission Date: 20120403
  Serious: Yes (Hospitalization)
  Sender: FDA-Public Use
  Company Number: 2011PROUSA00684

PATIENT
  Sex: Male
  Weight: 110.7 kg

DRUGS (1)
  1. PROVENGE [Suspect]
     Indication: PROSTATE CANCER METASTATIC
     Dosage: 250 ML, SINGLE, INTRAVENOUS
     Route: 042
     Dates: start: 20110822, end: 20110822

REACTIONS (3)
  - HAEMOLYTIC ANAEMIA [None]
  - FLUID OVERLOAD [None]
  - DYSPNOEA [None]
